FAERS Safety Report 8344434-1 (Version None)
Quarter: 2012Q2

REPORT INFORMATION
  Report Type: 
  Country: None (occurrence: None)
  Receive Date: 20120508
  Receipt Date: 20120503
  Transmission Date: 20120825
  Serious: Yes (Hospitalization)
  Sender: FDA-Public Use
  Company Number: GB-AMGEN-GBRCT2012020933

PATIENT
  Age: 27 Year
  Sex: Male
  Weight: 70 kg

DRUGS (6)
  1. GEMCITABINE [Concomitant]
     Indication: GERM CELL CANCER
     Dosage: 2050 MG, UNK
     Dates: start: 20100519
  2. CISPLATIN [Concomitant]
     Indication: GERM CELL CANCER
     Dosage: 190 MG, UNK
     Dates: start: 20100519
  3. IFOSFAMIDE [Concomitant]
     Indication: GERM CELL CANCER
     Dosage: 8500 MG, UNK
     Dates: start: 20100521
  4. PEGFILGRASTIM [Suspect]
     Indication: GERM CELL CANCER
     Dosage: UNK
     Dates: start: 20100526
  5. PACLITAXEL [Concomitant]
     Indication: GERM CELL CANCER
     Dosage: 300 MG, UNK
     Dates: start: 20100519
  6. NEUPOGEN [Concomitant]
     Dosage: 1200 MUG, UNK

REACTIONS (2)
  - EYE MOVEMENT DISORDER [None]
  - CONVULSION [None]
